FAERS Safety Report 16672909 (Version 1)
Quarter: 2019Q3

REPORT INFORMATION
  Report Type: Spontaneous
  Country: US (occurrence: US)
  Receive Date: 20190620
  Receipt Date: 20190620
  Transmission Date: 20191004
  Serious: No
  Sender: FDA-Public Use
  Company Number: None

PATIENT
  Age: 66 Year
  Sex: Female

DRUGS (7)
  1. VIT D [Concomitant]
     Active Substance: VITAMIN D NOS
  2. MAGNESIUM ZINC [Concomitant]
  3. TYKERB [Suspect]
     Active Substance: LAPATINIB DITOSYLATE
     Route: 048
     Dates: start: 20190308
  4. LOSARTAN. [Concomitant]
     Active Substance: LOSARTAN
     Route: 048
     Dates: start: 20190308
  5. CALCIUM [Concomitant]
     Active Substance: CALCIUM
  6. HERCEPTIN [Concomitant]
     Active Substance: TRASTUZUMAB
  7. VIT B [Concomitant]
     Active Substance: VITAMIN B

REACTIONS (3)
  - Diarrhoea [None]
  - Intestinal obstruction [None]
  - Vomiting [None]

NARRATIVE: CASE EVENT DATE: 201905
